FAERS Safety Report 19905677 (Version 1)
Quarter: 2021Q3

REPORT INFORMATION
  Report Type: Spontaneous
  Country: CA (occurrence: CA)
  Receive Date: 20210930
  Receipt Date: 20210930
  Transmission Date: 20211014
  Serious: Yes (Life-Threatening)
  Sender: FDA-Public Use
  Company Number: CA-TEVA-2021-CA-1958247

PATIENT
  Age: 3 Year
  Sex: Female
  Weight: 18 kg

DRUGS (16)
  1. CYTARABINE INJECTION [Suspect]
     Active Substance: CYTARABINE
     Indication: ACUTE LYMPHOCYTIC LEUKAEMIA
     Dosage: FREQUENCY: ONCE
     Route: 037
  2. HYDROCORTISONE. [Suspect]
     Active Substance: HYDROCORTISONE
     Dosage: FREQUENCY: ONCE
     Route: 037
  3. ACETAMINOPHEN. [Concomitant]
     Active Substance: ACETAMINOPHEN
  4. POLYETHYLENE GLYCOL [Concomitant]
     Active Substance: POLYETHYLENE GLYCOLS
  5. L?ASPARAGINASE [Suspect]
     Active Substance: ASPARAGINASE
     Dosage: DOSE:1260 UNITS
     Route: 042
  6. VALACYCLOVIR [Concomitant]
     Active Substance: VALACYCLOVIR HYDROCHLORIDE
  7. L?ASPARAGINASE [Suspect]
     Active Substance: ASPARAGINASE
     Indication: ACUTE LYMPHOCYTIC LEUKAEMIA
     Dosage: FREQUENCY: ONCE; DOSE:1260 UNITS
     Route: 042
  8. NYSTATIN. [Concomitant]
     Active Substance: NYSTATIN
  9. ONDANSETRON [Concomitant]
     Active Substance: ONDANSETRON
  10. METHOTREXATE. [Suspect]
     Active Substance: METHOTREXATE
     Indication: ACUTE LYMPHOCYTIC LEUKAEMIA
     Dosage: FREQUENCY: ONCE
     Route: 037
  11. VINCRISTINE SULFATE. [Suspect]
     Active Substance: VINCRISTINE SULFATE
     Indication: ACUTE LYMPHOCYTIC LEUKAEMIA
     Route: 040
  12. GABAPENTIN. [Concomitant]
     Active Substance: GABAPENTIN
  13. CEFTAZIDIME. [Concomitant]
     Active Substance: CEFTAZIDIME
  14. FISH OIL [Concomitant]
     Active Substance: FISH OIL
  15. METHOTREXATE. [Suspect]
     Active Substance: METHOTREXATE
     Dosage: FREQUENCY: ONCE
     Route: 030
  16. MERCAPTOPURINE. [Suspect]
     Active Substance: MERCAPTOPURINE
     Indication: ACUTE LYMPHOCYTIC LEUKAEMIA
     Dosage: 30 MILLIGRAM DAILY;
     Route: 048

REACTIONS (3)
  - Aplastic anaemia [Recovered/Resolved]
  - Chills [Recovered/Resolved]
  - Neutropenia [Recovered/Resolved]
